FAERS Safety Report 6342590-8 (Version None)
Quarter: 2009Q3

REPORT INFORMATION
  Report Type: 
  Country: None (occurrence: None)
  Receive Date: 20090908
  Receipt Date: 20090825
  Transmission Date: 20100115
  Serious: Yes (Other)
  Sender: FDA-Public Use
  Company Number: US-TYCO HEALTHCARE/MALLINCKRODT-T200901615

PATIENT
  Sex: Female

DRUGS (5)
  1. OPTIMARK [Suspect]
     Indication: NUCLEAR MAGNETIC RESONANCE IMAGING
     Dosage: UNK
     Dates: start: 20050614, end: 20050614
  2. OPTIMARK [Suspect]
     Dosage: UNK
     Dates: start: 20060118, end: 20060118
  3. OPTIMARK [Suspect]
     Dosage: UNK
     Dates: start: 20060316, end: 20060316
  4. OPTIMARK [Suspect]
     Dosage: UNK
     Dates: start: 20060420, end: 20060420
  5. OPTIMARK [Suspect]
     Dosage: UNK
     Dates: start: 20060905, end: 20060905

REACTIONS (1)
  - NEPHROGENIC SYSTEMIC FIBROSIS [None]
